FAERS Safety Report 21339432 (Version 1)
Quarter: 2022Q3

REPORT INFORMATION
  Report Type: Spontaneous
  Country: US (occurrence: US)
  Receive Date: 20220915
  Receipt Date: 20220915
  Transmission Date: 20221027
  Serious: No
  Sender: FDA-Public Use
  Company Number: US-SA-SAC20220907000655

PATIENT

DRUGS (1)
  1. LARONIDASE [Suspect]
     Active Substance: LARONIDASE
     Indication: Mucopolysaccharidosis I
     Dosage: 20.3 UNK, QW (20.3 FREQUENCY: QW)
     Route: 042
     Dates: start: 20170523

REACTIONS (2)
  - Hypersomnia [Unknown]
  - Fatigue [Unknown]
